FAERS Safety Report 20081410 (Version 1)
Quarter: 2021Q4

REPORT INFORMATION
  Report Type: Spontaneous
  Country: None (occurrence: US)
  Receive Date: 20211117
  Receipt Date: 20211117
  Transmission Date: 20220303
  Serious: No
  Sender: FDA-Public Use
  Company Number: US-Breckenridge Pharmaceutical, Inc.-2121963

PATIENT
  Age: 72 Year
  Sex: Female
  Weight: 172.57 kg

DRUGS (1)
  1. ALPRAZOLAM [Suspect]
     Active Substance: ALPRAZOLAM
     Indication: Anxiety disorder
     Route: 048

REACTIONS (2)
  - Therapeutic product ineffective [Unknown]
  - Product use issue [Unknown]
